FAERS Safety Report 9246974 (Version 3)
Quarter: 2013Q2

REPORT INFORMATION
  Report Type: Spontaneous
  Country: US (occurrence: US)
  Receive Date: 20130422
  Receipt Date: 20130511
  Transmission Date: 20140414
  Serious: No
  Sender: FDA-Public Use
  Company Number: US-009507513-1304USA004997

PATIENT
  Sex: Female

DRUGS (13)
  1. INTRONA [Suspect]
     Indication: MALIGNANT NEOPLASM OF CORNEA
     Dosage: UNK
     Route: 047
     Dates: start: 201110, end: 201203
  2. SODIUM CHLORIDE [Suspect]
     Indication: MALIGNANT NEOPLASM OF CORNEA
     Dosage: UNK
     Route: 047
     Dates: start: 201110, end: 201203
  3. THIMEROSAL [Concomitant]
     Indication: MALIGNANT NEOPLASM OF CORNEA
     Dosage: UNK
     Route: 047
     Dates: start: 201110, end: 201203
  4. LIPITOR [Concomitant]
  5. LANSOPRAZOLE [Concomitant]
  6. XALATAN [Concomitant]
  7. ACTONEL [Concomitant]
  8. ASPIRIN [Concomitant]
  9. ASCORBIC ACID [Concomitant]
  10. VITAMIN D (UNSPECIFIED) [Concomitant]
  11. VITAMIN E [Concomitant]
  12. CITRACAL [Concomitant]
  13. MAGNESIUM (UNSPECIFIED) [Concomitant]

REACTIONS (3)
  - Eye pain [Not Recovered/Not Resolved]
  - Dry eye [Unknown]
  - Blepharitis [Unknown]
